FAERS Safety Report 7793200-4 (Version None)
Quarter: 2011Q4

REPORT INFORMATION
  Report Type: 
  Country: None (occurrence: None)
  Receive Date: 20111003
  Receipt Date: 20110926
  Transmission Date: 20120403
  Serious: Yes (Death)
  Sender: FDA-Public Use
  Company Number: VE-ELI_LILLY_AND_COMPANY-VE201109007598

PATIENT
  Age: 61 Year
  Sex: Female

DRUGS (2)
  1. HUMALOG MIX 75/25 [Suspect]
     Dosage: 15 IU, EACH EVENING
     Dates: start: 20110707
  2. HUMALOG MIX 75/25 [Suspect]
     Dosage: 25 IU, EACH MORNING
     Dates: start: 20110707

REACTIONS (1)
  - INFARCTION [None]
